FAERS Safety Report 16195517 (Version 3)
Quarter: 2019Q2

REPORT INFORMATION
  Report Type: Spontaneous
  Country: US (occurrence: US)
  Receive Date: 20190415
  Receipt Date: 20190618
  Transmission Date: 20190711
  Serious: No
  Sender: FDA-Public Use
  Company Number: US-GW PHARMA-201902USGW0230

PATIENT

DRUGS (1)
  1. EPIDIOLEX [Suspect]
     Active Substance: CANNABIDIOL
     Indication: PRODUCT USED FOR UNKNOWN INDICATION
     Dosage: 14.7 MG/KG, 350 MILLIGRAM, BID
     Route: 065
     Dates: start: 20181128

REACTIONS (2)
  - Menstrual disorder [Unknown]
  - Decreased appetite [Unknown]
